FAERS Safety Report 4883763-0 (Version None)
Quarter: 2006Q1

REPORT INFORMATION
  Report Type: 
  Country: None (occurrence: None)
  Receive Date: 20060113
  Receipt Date: 20051229
  Transmission Date: 20060701
  Serious: Yes (Death, Hospitalization)
  Sender: FDA-Public Use
  Company Number: 6017923

PATIENT
  Age: 81 Year
  Sex: Female

DRUGS (17)
  1. LEVOTHYROX [Suspect]
     Indication: HYPOTHYROIDISM
     Dosage: 100 MCG (100 MCG, 1 IN 1 D), ORAL/YEARS
     Route: 048
  2. BUFLOMEDIL (TABLET) (BUFLOMEDIL) [Suspect]
     Dosage: DOSAGE FORMS (1 DOSAGE FORMS, 1 IN 1 D), ORAL/YEARS
     Route: 048
     Dates: end: 20041227
  3. AUGMENTIN [Suspect]
     Indication: PNEUMONIA
     Dosage: 3 GM (1 GM, 3 IN 1 D)
     Dates: start: 20041228, end: 20050105
  4. AUGMENTIN [Suspect]
     Indication: PNEUMONIA
     Dosage: 3 GM (1 GM, 3 IN 1 D)
     Dates: start: 20050105, end: 20050107
  5. IZILOX (TABLET) (MOXIFLOXACIN) [Suspect]
     Indication: PNEUMONIA
     Dosage: 1 DOSAGE FORMS (1 DOSAGE FORMS, 1 IN 1 D), ORAL
     Route: 048
     Dates: start: 20041229, end: 20050104
  6. CELECTOL [Suspect]
     Indication: HYPERTENSIVE CARDIOMYOPATHY
     Dosage: 200 MG (200 MG, 1 IN 1 D), ORAL/YEARS
     Route: 048
  7. AMLOR (5 MG, CAPSULE) (AMLODIPINE BESILATE) [Suspect]
     Indication: HYPERTENSIVE CARDIOMYOPATHY
     Dosage: 5 MG (5 MG, 1 IN 1 D), ORAL
     Route: 048
  8. CALCIPARINE ^SANOFI^ (SOLUTION FOR INJECTION) (HEPARIN CALCIUM) [Concomitant]
     Dosage: SUBCUTANEOUS
     Route: 058
     Dates: start: 20041229
  9. INSULIN (SOLUTION FOR INJECTION) (INSULIN) [Suspect]
     Dosage: INTRAVENOUS
     Route: 042
     Dates: start: 20041229
  10. DIFFU K (CAPSULE) (POTASSIUM CHLORIDE) [Suspect]
     Dosage: ORAL (LONG TERM USE)
     Route: 048
     Dates: end: 20041229
  11. LASILIX (40 MG, TABLET) (FUROSEMIDE) [Suspect]
     Dosage: 40 MG (40 MG, 1 IN 1 D), ORAL/LONG TERM USE
     Route: 048
     Dates: end: 20041229
  12. NOCTAMIDE (TABLET) (LORMETAZEPAM) [Suspect]
     Dosage: 1 DOSAGE FORMS (1 DOSAGE FORMS, 1 IN 1 D), ORAL/LONG TERM USE
     Route: 048
     Dates: end: 20041227
  13. CORENITEC (TABLET) (HYDROCHLOROTHIAZIDE, ENALAPRIL MALEATE) [Suspect]
     Dosage: 1 DOSAGE FORMS (1 DOSAGE FORMS, 1 IN 1 D), ORAL/LONG TERM USE
     Route: 048
  14. ELISOR (TABLET) (PRAVASTATIN SODIUM) [Suspect]
     Dosage: 1 DOSAGE FORMS (1 DOSAGE FORMS, 1 IN 1 D), ORAL/LONG TERM USE
     Route: 048
     Dates: end: 20050101
  15. ARESTAL (TABLET) (LOPERAMIDE OXIDE) [Suspect]
     Dosage: 3 DOSAGE FORMS (3 DOSAGE FORMS, 1 D), ORAL/LONG TERM USE
     Route: 048
     Dates: end: 20041227
  16. INSULIN [Suspect]
     Dosage: SUBCUTANEOUS/LONG TERM USE
  17. HUMALOG [Suspect]
     Dosage: SUBCUTANEOUS/LONG TERM USE
     Route: 058

REACTIONS (6)
  - CARDIAC FAILURE [None]
  - CHOLESTASIS [None]
  - CYTOLYTIC HEPATITIS [None]
  - FALL [None]
  - ISCHAEMIC CARDIOMYOPATHY [None]
  - PNEUMONIA [None]
